FAERS Safety Report 21371174 (Version 1)
Quarter: 2022Q3

REPORT INFORMATION
  Report Type: Spontaneous
  Country: JP (occurrence: JP)
  Receive Date: 20220923
  Receipt Date: 20220923
  Transmission Date: 20221027
  Serious: Yes (Other)
  Sender: FDA-Public Use
  Company Number: JP-BAYER-2022A131231

PATIENT
  Age: 73 Year
  Sex: Male

DRUGS (1)
  1. NUBEQA [Suspect]
     Active Substance: DAROLUTAMIDE
     Indication: Hormone-refractory prostate cancer
     Dosage: UNK
     Dates: start: 202103, end: 202107

REACTIONS (2)
  - Metastases to pelvis [Not Recovered/Not Resolved]
  - Prostatic specific antigen increased [Not Recovered/Not Resolved]

NARRATIVE: CASE EVENT DATE: 20210501
